FAERS Safety Report 16126614 (Version 1)
Quarter: 2019Q1

REPORT INFORMATION
  Report Type: Other
  Country: GB (occurrence: GB)
  Receive Date: 20190328
  Receipt Date: 20190328
  Transmission Date: 20190418
  Serious: Yes (Hospitalization, Other)
  Sender: FDA-Public Use
  Company Number: GB-MACLEODS PHARMACEUTICALS US LTD-MAC2019020590

PATIENT

DRUGS (2)
  1. ESCITALOPRAM [Suspect]
     Active Substance: ESCITALOPRAM OXALATE
     Indication: PRODUCT USED FOR UNKNOWN INDICATION
     Dosage: 40 MILLIGRAM, QD
     Route: 048
  2. FLUOXETINE [Concomitant]
     Active Substance: FLUOXETINE HYDROCHLORIDE
     Indication: PRODUCT USED FOR UNKNOWN INDICATION
     Dosage: 20 MILLIGRAM
     Route: 065

REACTIONS (9)
  - Cough [Unknown]
  - Lethargy [Unknown]
  - Electrocardiogram QT prolonged [Unknown]
  - Product dispensing error [Unknown]
  - Abdominal discomfort [Unknown]
  - Somnolence [Unknown]
  - Blood potassium increased [Unknown]
  - Gastrooesophageal reflux disease [Unknown]
  - Malaise [Unknown]
